FAERS Safety Report 14000317 (Version 1)
Quarter: 2017Q3

REPORT INFORMATION
  Report Type: Report from Study
  Country: US (occurrence: US)
  Receive Date: 20170922
  Receipt Date: 20170922
  Transmission Date: 20171128
  Serious: Yes (Hospitalization)
  Sender: FDA-Public Use
  Company Number: US-BAYER-2017-177038

PATIENT
  Age: 60 Year
  Sex: Male

DRUGS (2)
  1. NEXAVAR [Suspect]
     Active Substance: SORAFENIB
     Indication: HEPATIC CANCER
     Dosage: 400 MG, BID ON AN EMPTY STOMACH AT LEAST 1 HOUR BEFORE OR 2 HOURS AFTER EATING
     Route: 048
     Dates: start: 201701, end: 201709
  2. TRAMADOL. [Concomitant]
     Active Substance: TRAMADOL
     Route: 062

REACTIONS (1)
  - Mental disorder [Not Recovered/Not Resolved]
